FAERS Safety Report 5311612-5 (Version None)
Quarter: 2007Q2

REPORT INFORMATION
  Report Type: 
  Country: None (occurrence: None)
  Receive Date: 20070430
  Receipt Date: 20070427
  Transmission Date: 20071010
  Serious: Yes (Hospitalization)
  Sender: FDA-Public Use
  Company Number: DE-GENENTECH-237720

PATIENT
  Sex: Male

DRUGS (2)
  1. EFALIZUMAB [Suspect]
     Indication: PSORIASIS
     Dosage: 1 ML, 1/WEEK
     Route: 058
     Dates: start: 20060921, end: 20070222
  2. ACETYLSALICYLIC ACID SRT [Concomitant]
     Indication: ANTICOAGULANT THERAPY
     Dosage: UNK, QD
     Route: 048
     Dates: start: 20060616

REACTIONS (1)
  - SUBDURAL HAEMATOMA [None]
